FAERS Safety Report 5663824-9 (Version None)
Quarter: 2008Q1

REPORT INFORMATION
  Report Type: 
  Country: None (occurrence: None)
  Receive Date: 20080307
  Receipt Date: 20080304
  Transmission Date: 20080703
  Serious: Yes (Congenital Anomaly)
  Sender: FDA-Public Use
  Company Number: RB-0310-2008

PATIENT
  Age: 2 Day
  Sex: Male

DRUGS (1)
  1. SUBUTEX [Suspect]
     Indication: DRUG EXPOSURE DURING PREGNANCY
     Dosage: TRANPLACENTAL
     Route: 064
     Dates: start: 20070320, end: 20071226

REACTIONS (8)
  - CAESAREAN SECTION [None]
  - CONGENITAL ANOMALY [None]
  - DRUG EXPOSURE DURING PREGNANCY [None]
  - FOETAL DISTRESS SYNDROME [None]
  - HYPOGLYCAEMIA NEONATAL [None]
  - HYPOPITUITARISM FOETAL [None]
  - POSTMATURE BABY [None]
  - YELLOW SKIN [None]
